FAERS Safety Report 15827013 (Version 1)
Quarter: 2019Q1

REPORT INFORMATION
  Report Type: Report from Study
  Country: US (occurrence: US)
  Receive Date: 20190115
  Receipt Date: 20190115
  Transmission Date: 20190417
  Serious: Yes (Hospitalization)
  Sender: FDA-Public Use
  Company Number: US-EISAI MEDICAL RESEARCH-EC-2018-048570

PATIENT
  Sex: Female

DRUGS (13)
  1. MEGESTROL [Concomitant]
     Active Substance: MEGESTROL
  2. ONDANSETRON [Concomitant]
     Active Substance: ONDANSETRON
  3. PREDNISOLONE. [Concomitant]
     Active Substance: PREDNISOLONE
  4. LENVIMA [Suspect]
     Active Substance: LENVATINIB
     Indication: HEPATOCELLULAR CARCINOMA
     Route: 048
     Dates: start: 20181121, end: 20190101
  5. LENVIMA [Suspect]
     Active Substance: LENVATINIB
     Route: 048
     Dates: start: 20190108
  6. OXYCODONE [Concomitant]
     Active Substance: OXYCODONE
  7. PROCHLORPERAZINE. [Concomitant]
     Active Substance: PROCHLORPERAZINE
  8. AMOXICILLIN-CLAVULANAT [Concomitant]
  9. MULTIVITAMINS [Concomitant]
     Active Substance: VITAMINS
  10. FLUCELVAX-QUAD [Concomitant]
  11. TRANSDERM SCOP [Concomitant]
     Active Substance: SCOPOLAMINE
  12. METOCLOPRAMIDE. [Concomitant]
     Active Substance: METOCLOPRAMIDE
  13. ZOLPIDEM [Concomitant]
     Active Substance: ZOLPIDEM\ZOLPIDEM TARTRATE

REACTIONS (7)
  - Abdominal discomfort [Recovering/Resolving]
  - Nausea [Recovering/Resolving]
  - Back pain [Recovered/Resolved]
  - Migraine [Recovered/Resolved]
  - Fatigue [Recovering/Resolving]
  - Myalgia [Recovered/Resolved]
  - Tension headache [Recovering/Resolving]

NARRATIVE: CASE EVENT DATE: 2018
